FAERS Safety Report 25768437 (Version 1)
Quarter: 2025Q3

REPORT INFORMATION
  Report Type: Spontaneous
  Country: US (occurrence: None)
  Receive Date: 20250905
  Receipt Date: 20250905
  Transmission Date: 20251020
  Serious: Yes (Life-Threatening, Hospitalization)
  Sender: FDA-CTU
  Company Number: None

PATIENT
  Age: 7 Year
  Sex: Female
  Weight: 25 kg

DRUGS (1)
  1. SULFAMETHOXAZOLE\TRIMETHOPRIM [Suspect]
     Active Substance: SULFAMETHOXAZOLE\TRIMETHOPRIM
     Indication: Osteomyelitis chronic
     Dosage: FREQUENCY : TWICE A DAY;?
     Route: 048
     Dates: start: 20250808, end: 20250902

REACTIONS (6)
  - Pneumothorax [None]
  - Pyrexia [None]
  - Subcutaneous emphysema [None]
  - Respiratory failure [None]
  - Pneumomediastinum [None]
  - Pulmonary toxicity [None]

NARRATIVE: CASE EVENT DATE: 20250902
